APPROVED DRUG PRODUCT: ELTROMBOPAG OLAMINE
Active Ingredient: ELTROMBOPAG OLAMINE
Strength: EQ 25MG ACID/PACKET
Dosage Form/Route: FOR SUSPENSION;ORAL
Application: A216620 | Product #002 | TE Code: AB
Applicant: ANNORA PHARMA PRIVATE LTD
Approved: Apr 18, 2024 | RLD: No | RS: No | Type: RX